FAERS Safety Report 9830236 (Version 2)
Quarter: 2014Q1

REPORT INFORMATION
  Report Type: Spontaneous
  Country: ES (occurrence: ES)
  Receive Date: 20140120
  Receipt Date: 20140120
  Transmission Date: 20141002
  Serious: Yes (Hospitalization)
  Sender: FDA-Public Use
  Company Number: ES-PFIZER INC-2014015090

PATIENT
  Sex: Female

DRUGS (2)
  1. ALDACTONE [Suspect]
     Indication: CARDIAC FAILURE
     Dosage: UNK
     Route: 048
     Dates: start: 201302
  2. BOI K [Interacting]
     Dosage: UNK
     Route: 048
     Dates: start: 201302

REACTIONS (5)
  - Medication error [Unknown]
  - Hyperkalaemia [Recovered/Resolved]
  - Cardiac failure acute [Recovered/Resolved]
  - Renal failure acute [Recovered/Resolved]
  - Drug interaction [Unknown]
